FAERS Safety Report 12996023 (Version 1)
Quarter: 2016Q4

REPORT INFORMATION
  Report Type: Spontaneous
  Country: US (occurrence: US)
  Receive Date: 20161202
  Receipt Date: 20161202
  Transmission Date: 20170207
  Serious: No
  Sender: FDA-Public Use
  Company Number: US-BAXALTA-2016BLT008325

PATIENT
  Sex: Female
  Weight: 52 kg

DRUGS (3)
  1. GAMMAGARD LIQUID [Suspect]
     Active Substance: HUMAN IMMUNOGLOBULIN G
     Indication: OFF LABEL USE
     Dosage: 40 MG, EVERY 6 WK
     Route: 042
     Dates: start: 20161001
  2. GAMMAGARD LIQUID [Suspect]
     Active Substance: HUMAN IMMUNOGLOBULIN G
     Indication: CHRONIC INFLAMMATORY DEMYELINATING POLYRADICULONEUROPATHY
     Dosage: 40 MG, EVERY 6 WK
     Route: 042
     Dates: start: 2012
  3. PRENATAL VITAMINS                  /02014401/ [Concomitant]
     Active Substance: VITAMINS
     Indication: SUPPLEMENTATION THERAPY
     Dosage: 1 DF, 1X A DAY
     Route: 048
     Dates: start: 201609

REACTIONS (2)
  - No adverse event [Recovered/Resolved]
  - Maternal exposure before pregnancy [Not Recovered/Not Resolved]
